FAERS Safety Report 8009394-1 (Version None)
Quarter: 2011Q4

REPORT INFORMATION
  Report Type: 
  Country: None (occurrence: None)
  Receive Date: 20111227
  Receipt Date: 20111215
  Transmission Date: 20120403
  Serious: Yes (Death, Hospitalization)
  Sender: FDA-Public Use
  Company Number: JP-ACTELION-A-CH2011-51149

PATIENT
  Sex: Female
  Weight: 4 kg

DRUGS (5)
  1. BERAPROST SODIUM [Concomitant]
  2. FUROSEMIDE [Concomitant]
  3. OXYGEN [Concomitant]
  4. TRACLEER [Suspect]
     Indication: PULMONARY ARTERIAL HYPERTENSION
     Dosage: 2 MG, BID
     Route: 048
     Dates: start: 20110201, end: 20110217
  5. SPIRONOLACTONE [Concomitant]

REACTIONS (3)
  - TRACHEAL STENOSIS [None]
  - MULTI-ORGAN FAILURE [None]
  - TRACHEAL OPERATION [None]
